FAERS Safety Report 9550915 (Version 1)
Quarter: 2013Q3

REPORT INFORMATION
  Report Type: Spontaneous
  Country: US (occurrence: US)
  Receive Date: 20130924
  Receipt Date: 20130924
  Transmission Date: 20140515
  Serious: No
  Sender: FDA-Public Use
  Company Number: US-SANOFI-AVENTIS-2013SA049215

PATIENT
  Age: 32 Year
  Sex: Female
  Weight: 51.26 kg

DRUGS (4)
  1. AUBAGIO [Suspect]
     Indication: MULTIPLE SCLEROSIS
     Route: 048
     Dates: start: 20130301
  2. LEXAPRO [Concomitant]
     Indication: DEPRESSION
     Dates: start: 201201
  3. ZOLPIDEM [Concomitant]
     Indication: INSOMNIA
     Dates: start: 201301
  4. TRAZODONE [Concomitant]
     Indication: DEPRESSION
     Dates: start: 201201

REACTIONS (3)
  - Rash [Recovered/Resolved]
  - Diarrhoea [Not Recovered/Not Resolved]
  - Drug dose omission [Unknown]
